FAERS Safety Report 12138052 (Version 1)
Quarter: 2016Q1

REPORT INFORMATION
  Report Type: Spontaneous
  Country: GB (occurrence: GB)
  Receive Date: 20160302
  Receipt Date: 20160302
  Transmission Date: 20160526
  Serious: Yes (Hospitalization)
  Sender: FDA-Public Use
  Company Number: GB-MYLANLABS-2016M1009025

PATIENT

DRUGS (1)
  1. TRAMADOL. [Suspect]
     Active Substance: TRAMADOL
     Indication: PAIN
     Dosage: 100MG
     Route: 042

REACTIONS (3)
  - Serotonin syndrome [Recovering/Resolving]
  - Metabolic acidosis [Recovered/Resolved]
  - Generalised tonic-clonic seizure [Recovered/Resolved]
